FAERS Safety Report 9314314 (Version 1)
Quarter: 2013Q2

REPORT INFORMATION
  Report Type: Spontaneous
  Country: US (occurrence: None)
  Receive Date: 20130522
  Receipt Date: 20130522
  Transmission Date: 20140414
  Serious: Yes (Hospitalization)
  Sender: FDA-Public Use
  Company Number: UTC-032302

PATIENT
  Age: 69 Year
  Sex: Female
  Weight: 80.91 kg

DRUGS (3)
  1. REMODULIN [Suspect]
     Dosage: (20.16 UG/KG (0.014 UG/KG, 1 IN 1 MIN) SUBCUTANEOUS
     Route: 058
     Dates: start: 20130318
  2. ADCIRCA (TADALAFIL) (UNKNOWN) [Concomitant]
  3. LETAIRIS (AMBRISENTAN) (UNKNOWN) [Concomitant]

REACTIONS (5)
  - Syncope [None]
  - Fall [None]
  - Malaise [None]
  - Facial bones fracture [None]
  - Hypotension [None]
